FAERS Safety Report 9167218 (Version 3)
Quarter: 2013Q2

REPORT INFORMATION
  Report Type: Spontaneous
  Country: US (occurrence: US)
  Receive Date: 20130318
  Receipt Date: 20130508
  Transmission Date: 20140414
  Serious: No
  Sender: FDA-Public Use
  Company Number: US-BIOGENIDEC-2013BI023442

PATIENT
  Age: 54 Year
  Sex: Female

DRUGS (1)
  1. TYSABRI [Suspect]
     Indication: MULTIPLE SCLEROSIS
     Route: 042
     Dates: start: 20120330

REACTIONS (6)
  - Skin discolouration [Recovered/Resolved]
  - Erythema [Unknown]
  - Wound [Not Recovered/Not Resolved]
  - Skin ulcer [Not Recovered/Not Resolved]
  - Peripheral coldness [Recovered/Resolved]
  - Localised infection [Not Recovered/Not Resolved]
